FAERS Safety Report 16625356 (Version 1)
Quarter: 2019Q3

REPORT INFORMATION
  Report Type: Spontaneous
  Country: US (occurrence: US)
  Receive Date: 20190612
  Receipt Date: 20190612
  Transmission Date: 20191004
  Serious: No
  Sender: FDA-Public Use
  Company Number: None

PATIENT
  Age: 72 Year
  Sex: Male

DRUGS (1)
  1. DOFETILIDE 250MCG BIONPHARMA [Suspect]
     Active Substance: DOFETILIDE
     Indication: ATRIAL FIBRILLATION
     Route: 048
     Dates: start: 201802

REACTIONS (4)
  - Rash papular [None]
  - Rash pruritic [None]
  - Acne [None]
  - Rash generalised [None]

NARRATIVE: CASE EVENT DATE: 201904
